FAERS Safety Report 7620260 (Version 9)
Quarter: 2013Q4

REPORT INFORMATION
  Report Type: Spontaneous
  Country: US (occurrence: US)
  Receive Date: 20101007
  Receipt Date: 20131218
  Transmission Date: 20140711
  Serious: Yes (Hospitalization, Other)
  Sender: FDA-Public Use
  Company Number: US-ROCHE-706920

PATIENT
  Age: 27 Year
  Sex: Female
  Weight: 50.8 kg

DRUGS (1)
  1. ACCUTANE [Suspect]
     Indication: ACNE
     Dosage: DISCONTINUED ON 16 MAY 2010
     Route: 065
     Dates: start: 1995, end: 1995

REACTIONS (10)
  - Enterocutaneous fistula [Unknown]
  - Pelvic abscess [Unknown]
  - Intestinal obstruction [Unknown]
  - Crohn^s disease [Unknown]
  - Inflammatory bowel disease [Unknown]
  - Anal stenosis [Unknown]
  - Rectal polyp [Unknown]
  - Anal fistula [Unknown]
  - Colitis [Unknown]
  - Large intestine polyp [Unknown]
